FAERS Safety Report 23013717 (Version 1)
Quarter: 2023Q4

REPORT INFORMATION
  Report Type: Spontaneous
  Country: GB (occurrence: GB)
  Receive Date: 20231001
  Receipt Date: 20231001
  Transmission Date: 20240109
  Serious: Yes (Disabling, Other)
  Sender: FDA-Public Use
  Company Number: None

PATIENT
  Sex: Female

DRUGS (1)
  1. MIRTAZAPINE [Suspect]
     Active Substance: MIRTAZAPINE
     Indication: Depression
     Dosage: AT NIGHT
     Dates: start: 20191101

REACTIONS (4)
  - Pain in extremity [Not Recovered/Not Resolved]
  - Nightmare [Not Recovered/Not Resolved]
  - Chest pain [Not Recovered/Not Resolved]
  - Sleep paralysis [Not Recovered/Not Resolved]

NARRATIVE: CASE EVENT DATE: 20191110
